FAERS Safety Report 7629687-7 (Version None)
Quarter: 2011Q3

REPORT INFORMATION
  Report Type: 
  Country: None (occurrence: None)
  Receive Date: 20110722
  Receipt Date: 20110713
  Transmission Date: 20111222
  Serious: Yes (Other)
  Sender: FDA-Public Use
  Company Number: CA-ROCHE-790150

PATIENT
  Sex: Female
  Weight: 61.2 kg

DRUGS (9)
  1. FRISIUM [Concomitant]
  2. CALCIUM CARBONATE [Concomitant]
  3. DECADRON [Concomitant]
  4. PANTOPRAZOLE SODIUM [Concomitant]
  5. CLONAZEPAM [Concomitant]
     Dosage: PRN
  6. ALENDRONATE SODIUM [Concomitant]
  7. BEVACIZUMAB [Suspect]
     Indication: GLIOMA
     Route: 042
     Dates: start: 20110708
  8. KEPPRA [Concomitant]
  9. STATEX [Concomitant]

REACTIONS (1)
  - CONVULSION [None]
